FAERS Safety Report 7519479-1 (Version None)
Quarter: 2011Q2

REPORT INFORMATION
  Report Type: 
  Country: None (occurrence: None)
  Receive Date: 20110524
  Receipt Date: 20110517
  Transmission Date: 20111010
  Serious: Yes (Life-Threatening, Hospitalization)
  Sender: FDA-Public Use
  Company Number: ABR_00132_2011

PATIENT
  Sex: Male

DRUGS (5)
  1. INNOVAIR (INNOVAIR) (NOT SPECIFIED) [Suspect]
     Indication: COUGH
     Dosage: 100/60 UG/DOSEN (1 DOSAGE FORMS, 100/60 UG/DOSE)
     Dates: start: 20110412, end: 20110414
  2. ACETAMINOPHEN [Concomitant]
  3. ERYTHROCIN [Suspect]
     Indication: COUGH
     Dosage: 3 G, (1 GM, 3 IN 1 D), ORAL
     Route: 048
     Dates: start: 20110412, end: 20110413
  4. HELICIDINE [Concomitant]
  5. ADVIL LIQUI-GELS [Concomitant]

REACTIONS (1)
  - TOXIC EPIDERMAL NECROLYSIS [None]
